FAERS Safety Report 5211432-6 (Version None)
Quarter: 2006Q4

REPORT INFORMATION
  Report Type: 
  Country: None (occurrence: None)
  Receive Date: 20061115
  Receipt Date: 20060728
  Transmission Date: 20070319
  Serious: Yes (Other)
  Sender: FDA-Public Use
  Company Number: 200616354US

PATIENT
  Age: 62 Year
  Sex: Female
  Weight: 78.86 kg

DRUGS (11)
  1. APIDRA [Suspect]
     Indication: DIABETES MELLITUS NON-INSULIN-DEPENDENT
     Dosage: PRN
     Dates: start: 20060601
  2. METFORMIN HYDROCHLORIDE, GLIBENCLAMIDE (GLYBURIDE/METFORMIN) [Concomitant]
  3. BISOPROLOL FUMARATE (ZEBETA) [Concomitant]
  4. IMDUR [Concomitant]
  5. VALSARTAN (DIOVANE) [Concomitant]
  6. ATORVASTATIN CALCIUM, AMLODIPINE BESILATE (CADUET) [Concomitant]
  7. TRICOR [Concomitant]
  8. LEVOTHYROXINE SODIUM (LEVOXYL) [Concomitant]
  9. METFORMIN HYDROCHLORIDE [Concomitant]
  10. PARACETAMOL, OXYCODONE HYDROCHLORIDE (PERCOCET) [Concomitant]
  11. METAXALONE (SKELAXIN) [Concomitant]

REACTIONS (5)
  - DISCOMFORT [None]
  - DIZZINESS [None]
  - HYPERHIDROSIS [None]
  - HYPOGLYCAEMIA [None]
  - INJECTION SITE BRUISING [None]
